FAERS Safety Report 6609013-2 (Version None)
Quarter: 2010Q1

REPORT INFORMATION
  Report Type: 
  Country: None (occurrence: None)
  Receive Date: 20100225
  Receipt Date: 20100225
  Transmission Date: 20100710
  Serious: Yes (Other)
  Sender: FDA-Public Use
  Company Number: None

PATIENT
  Age: 30 Year
  Sex: Female
  Weight: 90.7194 kg

DRUGS (2)
  1. ARTICAINE HYDROCHLORIDE WITH EPINEPHRINE [Suspect]
     Indication: DENTAL OPERATION
     Dosage: 68MG ONCE DENTAL ONCE
     Route: 004
     Dates: start: 20090820, end: 20090820
  2. ARTICAINE HYDROCHLORIDE WITH EPINEPHRINE [Suspect]
     Indication: LOCAL ANAESTHESIA
     Dosage: 68MG ONCE DENTAL ONCE
     Route: 004
     Dates: start: 20090820, end: 20090820

REACTIONS (6)
  - ANAESTHETIC COMPLICATION [None]
  - BONE DISORDER [None]
  - DISCOMFORT [None]
  - GINGIVAL DISORDER [None]
  - NECROSIS [None]
  - PAIN [None]
